APPROVED DRUG PRODUCT: PHENDIMETRAZINE TARTRATE
Active Ingredient: PHENDIMETRAZINE TARTRATE
Strength: 35MG
Dosage Form/Route: TABLET;ORAL
Application: A089452 | Product #001 | TE Code: AA
Applicant: CHARTWELL SCHEDULED LLC
Approved: Oct 30, 1991 | RLD: No | RS: No | Type: RX